FAERS Safety Report 20204279 (Version 2)
Quarter: 2021Q4

REPORT INFORMATION
  Report Type: Spontaneous
  Country: EG (occurrence: EG)
  Receive Date: 20211220
  Receipt Date: 20211231
  Transmission Date: 20220303
  Serious: Yes (Death, Hospitalization, Other)
  Sender: FDA-Public Use
  Company Number: EG-SA-SAC20211019000727

PATIENT
  Age: 1 Year
  Sex: Male
  Weight: 6 kg

DRUGS (5)
  1. MYOZYME [Suspect]
     Active Substance: ALGLUCOSIDASE ALFA
     Indication: Glycogen storage disease type II
     Dosage: UNK
     Route: 042
     Dates: start: 2020
  2. MYOZYME [Suspect]
     Active Substance: ALGLUCOSIDASE ALFA
     Dosage: 2.5 DF, QOW (DOSE: 2.5 VIALS UNITS: 2.5X50)
     Route: 042
     Dates: start: 20210204, end: 20210724
  3. CAPOTEN [Concomitant]
     Active Substance: CAPTOPRIL
     Dosage: 0.5 MG/KG, QD
     Dates: start: 20210929, end: 20211015
  4. ALDACTONE [Concomitant]
     Active Substance: SPIRONOLACTONE
     Dosage: 1 MG/KG, QD
     Dates: start: 20210929, end: 20211015
  5. LASIX [Concomitant]
     Active Substance: FUROSEMIDE
     Dosage: 1.5 MG/KG, QD
     Dates: start: 20210929, end: 20211015

REACTIONS (13)
  - Pneumonia klebsiella [Fatal]
  - Respiratory distress [Fatal]
  - Body temperature increased [Fatal]
  - Cardiac arrest [Fatal]
  - Cardiac failure [Fatal]
  - Ejection fraction decreased [Fatal]
  - Sepsis [Fatal]
  - C-reactive protein increased [Fatal]
  - Septic shock [Fatal]
  - Peripheral coldness [Fatal]
  - Chest X-ray abnormal [Unknown]
  - General physical health deterioration [Unknown]
  - Hypercapnia [Unknown]

NARRATIVE: CASE EVENT DATE: 20210101
